FAERS Safety Report 17120468 (Version 1)
Quarter: 2019Q4

REPORT INFORMATION
  Report Type: Spontaneous
  Country: FR (occurrence: FR)
  Receive Date: 20191206
  Receipt Date: 20191206
  Transmission Date: 20200122
  Serious: Yes (Hospitalization)
  Sender: FDA-Public Use
  Company Number: FR-TEVA-2019-FR-1147519

PATIENT
  Age: 72 Year
  Sex: Male
  Weight: 86 kg

DRUGS (13)
  1. LASILIX 40 MG, COMPRIM? S?CABLE [Concomitant]
     Active Substance: FUROSEMIDE
  2. CLOPIDOGREL (CHLORHYDRATE DE) [Suspect]
     Active Substance: CLOPIDOGREL HYDROCHLORIDE
     Indication: THROMBOSIS PROPHYLAXIS
     Dosage: 75 MG
     Route: 048
  3. ZERBAXA [Interacting]
     Active Substance: CEFTOLOZANE SULFATE\TAZOBACTAM SODIUM
     Indication: OSTEITIS
     Dosage: CEFTALOZANE 250MG/J / TAZOBACTAM 125 MG/J
     Route: 042
     Dates: start: 20190819, end: 20191003
  4. GALVUS 50 MG, COMPRIM? [Concomitant]
     Active Substance: VILDAGLIPTIN
  5. MACROGOL 4000 [Concomitant]
     Active Substance: POLYETHYLENE GLYCOL 4000
  6. PREGABALINE [Concomitant]
     Active Substance: PREGABALIN
  7. LINEZOLID. [Interacting]
     Active Substance: LINEZOLID
     Indication: OSTEITIS
     Dosage: 600 MG
     Route: 048
     Dates: start: 20190819, end: 20191003
  8. AMLODIPINE [Concomitant]
     Active Substance: AMLODIPINE BESYLATE
  9. LEVEMIR [Concomitant]
     Active Substance: INSULIN DETEMIR
  10. TAMSULOSINE [Concomitant]
     Active Substance: TAMSULOSIN HYDROCHLORIDE
  11. COUMADINE 2 MG, COMPRIME SECABLE [Interacting]
     Active Substance: WARFARIN SODIUM
     Indication: ATRIAL FIBRILLATION
     Dosage: 2 MG
     Route: 048
     Dates: start: 20190913
  12. NEBIVOLOL. [Concomitant]
     Active Substance: NEBIVOLOL
  13. VERATRAN 5 MG, COMPRIM? [Concomitant]
     Active Substance: CLOTIAZEPAM

REACTIONS (3)
  - Gastrointestinal haemorrhage [Recovered/Resolved]
  - Shock haemorrhagic [Recovered/Resolved]
  - Drug interaction [Unknown]

NARRATIVE: CASE EVENT DATE: 20191002
